FAERS Safety Report 9760992 (Version 1)
Quarter: 2013Q4

REPORT INFORMATION
  Report Type: Spontaneous
  Country: AU (occurrence: AU)
  Receive Date: 20131216
  Receipt Date: 20131216
  Transmission Date: 20140711
  Serious: Yes (Hospitalization, Other)
  Sender: FDA-Public Use
  Company Number: PHHY2013AU142600

PATIENT
  Sex: Male

DRUGS (2)
  1. SANDOSTATIN LAR [Suspect]
     Indication: NEUROENDOCRINE TUMOUR
     Dosage: UNK UKN, MONTHLY
     Route: 065
     Dates: start: 20131113
  2. PERINDOPRIL [Concomitant]
     Dosage: 4 MG, UNK

REACTIONS (12)
  - Viral rash [Unknown]
  - Hypersensitivity vasculitis [Unknown]
  - Ill-defined disorder [Unknown]
  - Night sweats [Unknown]
  - Pyrexia [Unknown]
  - Myalgia [Unknown]
  - Abdominal pain [Unknown]
  - Diarrhoea [Unknown]
  - Decreased appetite [Unknown]
  - Malaise [Unknown]
  - Nausea [Unknown]
  - Cough [Unknown]
